FAERS Safety Report 23100570 (Version 3)
Quarter: 2025Q2

REPORT INFORMATION
  Report Type: Spontaneous
  Country: IN (occurrence: IN)
  Receive Date: 20231024
  Receipt Date: 20250513
  Transmission Date: 20250717
  Serious: Yes (Hospitalization, Other)
  Sender: PFIZER
  Company Number: IN-PFIZER INC-PV202300171781

PATIENT
  Age: 75 Year
  Sex: Male

DRUGS (2)
  1. LORLATINIB [Suspect]
     Active Substance: LORLATINIB
     Dates: start: 20231009
  2. LORLATINIB [Suspect]
     Active Substance: LORLATINIB
     Route: 048
     Dates: start: 20231011

REACTIONS (9)
  - Ulcer [Unknown]
  - Haemoglobin decreased [Unknown]
  - Haematochezia [Unknown]
  - Malignant neoplasm progression [Unknown]
  - Nausea [Unknown]
  - Burning sensation [Unknown]
  - Hyperchlorhydria [Unknown]
  - Diarrhoea [Unknown]
  - Asthenia [Unknown]
